FAERS Safety Report 17296120 (Version 4)
Quarter: 2024Q3

REPORT INFORMATION
  Report Type: Spontaneous
  Country: JP (occurrence: JP)
  Receive Date: 20200121
  Receipt Date: 20240912
  Transmission Date: 20241016
  Serious: Yes (Other)
  Sender: PFIZER
  Company Number: JP-MLMSERVICE-20200109-2116776-1

PATIENT
  Age: 62 Year
  Sex: Female

DRUGS (5)
  1. EPIRUBICIN HYDROCHLORIDE [Suspect]
     Active Substance: EPIRUBICIN HYDROCHLORIDE
     Indication: Breast cancer female
     Dosage: UNK, CYCLIC
  2. EPIRUBICIN HYDROCHLORIDE [Suspect]
     Active Substance: EPIRUBICIN HYDROCHLORIDE
     Dosage: 135 MG, EVERY 3 WEEKS (135 MG, 90 MG/M2)
  3. CYCLOPHOSPHAMIDE [Suspect]
     Active Substance: CYCLOPHOSPHAMIDE
     Indication: Breast cancer female
     Dosage: UNK, CYCLIC
  4. CYCLOPHOSPHAMIDE [Suspect]
     Active Substance: CYCLOPHOSPHAMIDE
     Dosage: 902 MG, EVERY 3 WEEKS (902 MG, 600 MG/M2)
  5. PREDNISOLONE [Suspect]
     Active Substance: PREDNISOLONE
     Dosage: 11.4 MG, 1X/DAY (AT AN AVERAGE DOSE)

REACTIONS (2)
  - Pneumocystis jirovecii pneumonia [Recovered/Resolved]
  - Febrile neutropenia [Unknown]
